FAERS Safety Report 5076632-7 (Version None)
Quarter: 2006Q3

REPORT INFORMATION
  Report Type: 
  Country: None (occurrence: None)
  Receive Date: 20060725
  Receipt Date: 20060208
  Transmission Date: 20061208
  Serious: No
  Sender: FDA-Public Use
  Company Number: 200610762BWH

PATIENT
  Age: 69 Year
  Sex: Male
  Weight: 58.514 kg

DRUGS (4)
  1. NEXAVAR [Suspect]
     Indication: METASTATIC RENAL CELL CARCINOMA
     Dosage: SEE IMAGE
     Route: 048
     Dates: start: 20060120, end: 20060310
  2. NEXAVAR [Suspect]
     Indication: METASTATIC RENAL CELL CARCINOMA
     Dosage: SEE IMAGE
     Route: 048
     Dates: start: 20060316
  3. MEGACE [Concomitant]
  4. TEMAZEPAM [Concomitant]

REACTIONS (12)
  - ACNE [None]
  - EPISTAXIS [None]
  - FATIGUE [None]
  - GLOSSODYNIA [None]
  - HYPOTRICHOSIS [None]
  - INSOMNIA [None]
  - JOINT SWELLING [None]
  - PAIN IN EXTREMITY [None]
  - SKIN FISSURES [None]
  - TONGUE DISORDER [None]
  - TONGUE ULCERATION [None]
  - WEIGHT INCREASED [None]
